FAERS Safety Report 9926088 (Version 1)
Quarter: 2014Q1

REPORT INFORMATION
  Report Type: Not Available
  Country: US (occurrence: US)
  Receive Date: 20140226
  Receipt Date: 20140226
  Transmission Date: 20141002
  Serious: Yes (Hospitalization, Other)
  Sender: FDA-Public Use
  Company Number: US-ENDO PHARMACEUTICALS INC.-OPCR20140059

PATIENT
  Sex: Female

DRUGS (1)
  1. OPANA ER [Suspect]
     Indication: PAIN
     Dosage: UNK
     Route: 065

REACTIONS (3)
  - Hospitalisation [Unknown]
  - Convulsion [Unknown]
  - Withdrawal syndrome [Unknown]
